FAERS Safety Report 13492362 (Version 8)
Quarter: 2017Q3

REPORT INFORMATION
  Report Type: Spontaneous
  Country: US (occurrence: US)
  Receive Date: 20170427
  Receipt Date: 20170920
  Transmission Date: 20171127
  Serious: No
  Sender: FDA-Public Use
  Company Number: US-PFIZER INC-2017182140

PATIENT
  Age: 66 Year
  Sex: Female

DRUGS (6)
  1. IBRANCE [Suspect]
     Active Substance: PALBOCICLIB
     Indication: BREAST CANCER FEMALE
     Dosage: 100 MG, CYCLIC (TAKE 1 CAPSULE FOR 21 DAYS AND 7 DAYS OFF AND THEN REPEAT)
     Route: 048
  2. FENTANYL. [Concomitant]
     Active Substance: FENTANYL
     Indication: PAIN
     Dosage: UNK
  3. PREDNISONE. [Concomitant]
     Active Substance: PREDNISONE
     Dosage: UNK
  4. LETROZOLE. [Concomitant]
     Active Substance: LETROZOLE
     Dosage: UNK
  5. LIDOCAINE. [Concomitant]
     Active Substance: LIDOCAINE
     Indication: PAIN
     Dosage: UNK
  6. TRAMADOL. [Concomitant]
     Active Substance: TRAMADOL
     Indication: PAIN
     Dosage: UNK

REACTIONS (9)
  - Rash [Unknown]
  - Alopecia [Unknown]
  - Headache [Unknown]
  - Pain [Unknown]
  - Nasopharyngitis [Unknown]
  - Asthenia [Unknown]
  - Cough [Unknown]
  - Erythema [Unknown]
  - Oropharyngeal pain [Unknown]
